FAERS Safety Report 8742252 (Version 2)
Quarter: 2012Q4

REPORT INFORMATION
  Report Type: 
  Country: FR (occurrence: FR)
  Receive Date: 20120824
  Receipt Date: 20120904
  Transmission Date: 20130627
  Serious: Yes (Life-Threatening)
  Sender: FDA-Public Use
  Company Number: FR-SANOFI-AVENTIS-2012SA059607

PATIENT
  Age: 78 Year
  Sex: Male

DRUGS (1)
  1. LOVENOX [Suspect]
     Indication: DRUG USE FOR UNKNOWN INDICATION
     Dates: start: 20120703, end: 20120717

REACTIONS (3)
  - Cardio-respiratory arrest [Recovered/Resolved]
  - Grand mal convulsion [Recovered/Resolved]
  - Heparin-induced thrombocytopenia [Recovered/Resolved]
